FAERS Safety Report 5710007-X (Version None)
Quarter: 2008Q2

REPORT INFORMATION
  Report Type: 
  Country: None (occurrence: None)
  Receive Date: 20080418
  Receipt Date: 20080410
  Transmission Date: 20081010
  Serious: Yes (Hospitalization)
  Sender: FDA-Public Use
  Company Number: FR-ABBOTT-08P-056-0440249-00

PATIENT
  Sex: Female

DRUGS (3)
  1. CLARITHROMYCIN [Suspect]
     Indication: MYCOBACTERIUM MARINUM INFECTION
     Route: 048
     Dates: start: 20071129, end: 20080130
  2. CLARITHROMYCIN [Suspect]
     Dates: start: 20080219
  3. MINOCYCLINE HCL [Suspect]
     Indication: MYCOBACTERIUM MARINUM INFECTION
     Route: 048
     Dates: start: 20071129, end: 20080122

REACTIONS (5)
  - COAGULOPATHY [None]
  - DIARRHOEA [None]
  - ECCHYMOSIS [None]
  - OVERGROWTH BACTERIAL [None]
  - PROTHROMBIN TIME SHORTENED [None]
